FAERS Safety Report 23991212 (Version 3)
Quarter: 2025Q1

REPORT INFORMATION
  Report Type: Spontaneous
  Country: BG (occurrence: BG)
  Receive Date: 20240619
  Receipt Date: 20250117
  Transmission Date: 20250409
  Serious: Yes (Hospitalization, Other)
  Sender: TEVA
  Company Number: BG-ASTELLAS-2024EU005737

PATIENT
  Age: 62 Year
  Sex: Female

DRUGS (7)
  1. BENDAMUSTINE [Suspect]
     Active Substance: BENDAMUSTINE
     Indication: Lymphoplasmacytoid lymphoma/immunocytoma stage IV
     Route: 042
     Dates: start: 202211, end: 202301
  2. BENDAMUSTINE [Suspect]
     Active Substance: BENDAMUSTINE
     Indication: Lymphoplasmacytoid lymphoma/immunocytoma stage IV
     Route: 042
  3. BENDAMUSTINE [Suspect]
     Active Substance: BENDAMUSTINE
     Indication: Lymphoplasmacytoid lymphoma/immunocytoma stage IV
     Route: 042
  4. RITUXIMAB [Suspect]
     Active Substance: RITUXIMAB
     Indication: Lymphoplasmacytoid lymphoma/immunocytoma stage IV
     Route: 065
  5. RITUXIMAB [Suspect]
     Active Substance: RITUXIMAB
     Indication: Lymphoplasmacytoid lymphoma/immunocytoma stage IV
     Route: 065
     Dates: start: 202211, end: 202301
  6. RITUXIMAB [Suspect]
     Active Substance: RITUXIMAB
     Indication: Lymphoplasmacytoid lymphoma/immunocytoma stage IV
     Route: 065
  7. DEXAMETHASONE [Concomitant]
     Active Substance: DEXAMETHASONE
     Indication: Lymphoplasmacytoid lymphoma/immunocytoma stage IV
     Dosage: FOR 4 DAYS

REACTIONS (2)
  - Renal failure [Unknown]
  - Anuria [Unknown]
